FAERS Safety Report 7501614-2 (Version None)
Quarter: 2011Q2

REPORT INFORMATION
  Report Type: 
  Country: None (occurrence: None)
  Receive Date: 20110524
  Receipt Date: 20110517
  Transmission Date: 20111010
  Serious: Yes (Other)
  Sender: FDA-Public Use
  Company Number: US-RB-026305-11

PATIENT
  Age: 31 Year
  Sex: Female

DRUGS (5)
  1. DESIPRAMIDE HCL [Concomitant]
     Indication: ATTENTION DEFICIT/HYPERACTIVITY DISORDER
     Dosage: DOSING INFORMATION UNKNOWN
  2. PRISTIQ [Concomitant]
     Indication: DEPRESSION
     Dosage: DOSING INFORMATION UNKNOWN
  3. WELLBUTRIN [Concomitant]
     Indication: DEPRESSION
     Dosage: DOSING INFORMATION UNKNOWN
  4. SUBOXONE [Suspect]
     Indication: DRUG DEPENDENCE
     Dosage: DOSING INFORMATION UNKNOWN
     Route: 060
     Dates: start: 20091001, end: 20101001
  5. SUBOXONE [Suspect]
     Indication: DRUG DEPENDENCE
     Dosage: SUBLINGUAL FILM / DOSING INFORMATION UNKNOWN
     Route: 060
     Dates: start: 20101001

REACTIONS (7)
  - HALLUCINATION [None]
  - DEPRESSION [None]
  - UNEVALUABLE EVENT [None]
  - DERMATILLOMANIA [None]
  - ATTENTION DEFICIT/HYPERACTIVITY DISORDER [None]
  - ANXIETY DISORDER [None]
  - OBSESSIVE-COMPULSIVE DISORDER [None]
